FAERS Safety Report 23951458 (Version 1)
Quarter: 2024Q2

REPORT INFORMATION
  Report Type: Spontaneous
  Country: US (occurrence: US)
  Receive Date: 20240607
  Receipt Date: 20240607
  Transmission Date: 20240715
  Serious: Yes (Hospitalization, Other)
  Sender: FDA-Public Use
  Company Number: US-BRISTOL-MYERS SQUIBB COMPANY-2024-092185

PATIENT
  Age: 80 Year
  Sex: Female
  Weight: 66.22 kg

DRUGS (1)
  1. POMALYST [Suspect]
     Active Substance: POMALIDOMIDE
     Indication: Plasma cell myeloma
     Dosage: 21D OF 28D
     Route: 048
     Dates: start: 20221001

REACTIONS (2)
  - Atrial fibrillation [Recovering/Resolving]
  - Compression fracture [Unknown]

NARRATIVE: CASE EVENT DATE: 20230101
